FAERS Safety Report 8521752-5 (Version None)
Quarter: 2012Q3

REPORT INFORMATION
  Report Type: 
  Country: None (occurrence: None)
  Receive Date: 20120719
  Receipt Date: 20111227
  Transmission Date: 20120928
  Serious: Yes (Hospitalization, Disabling, Other)
  Sender: FDA-Public Use
  Company Number: US-009507513-1104USA02652

PATIENT

DRUGS (8)
  1. FOSAMAX [Suspect]
     Indication: OSTEOPENIA
     Dosage: 10 MG, UNK
     Route: 048
     Dates: start: 19950101, end: 20011001
  2. MULTI-VITAMINS [Concomitant]
     Dosage: 1 DAILY
     Dates: start: 19800101
  3. FOSAMAX [Suspect]
     Dosage: 70 MG, UNK
     Route: 048
     Dates: start: 20050606, end: 20061120
  4. FOSAMAX [Suspect]
     Indication: OSTEOPOROSIS
     Dosage: 70 MG, UNK
     Route: 048
     Dates: start: 20010910, end: 20050314
  5. FOSAMAX PLUS D [Suspect]
     Indication: OSTEOPENIA
     Dosage: 70MG/2800
     Route: 048
     Dates: start: 20070222, end: 20080501
  6. LEVOTHROID [Concomitant]
     Indication: HYPOTHYROIDISM
     Dates: start: 19850101
  7. FOSAMAX [Suspect]
     Route: 048
     Dates: start: 20080201
  8. CALCIUM (UNSPECIFIED) [Concomitant]
     Dosage: 1500 MG, QD
     Dates: start: 19910101

REACTIONS (33)
  - TOOTH DISORDER [None]
  - RAYNAUD'S PHENOMENON [None]
  - BUNION [None]
  - FRACTURE NONUNION [None]
  - ANXIETY [None]
  - RHINITIS ALLERGIC [None]
  - FALL [None]
  - VIRAL UPPER RESPIRATORY TRACT INFECTION [None]
  - ADVERSE EVENT [None]
  - GINGIVAL DISORDER [None]
  - OSTEOARTHRITIS [None]
  - NEURONAL NEUROPATHY [None]
  - CARPAL TUNNEL SYNDROME [None]
  - LUMBAR RADICULOPATHY [None]
  - POST PROCEDURAL HAEMORRHAGE [None]
  - ATELECTASIS [None]
  - OVERDOSE [None]
  - BREAST CALCIFICATIONS [None]
  - EUSTACHIAN TUBE DYSFUNCTION [None]
  - FLUID RETENTION [None]
  - TRIGGER FINGER [None]
  - DEVICE BREAKAGE [None]
  - OEDEMA PERIPHERAL [None]
  - FOOT DEFORMITY [None]
  - LOW TURNOVER OSTEOPATHY [None]
  - BACK PAIN [None]
  - ANAEMIA POSTOPERATIVE [None]
  - FEMUR FRACTURE [None]
  - SPINAL OSTEOARTHRITIS [None]
  - PULMONARY FIBROSIS [None]
  - PAIN IN EXTREMITY [None]
  - HYPOTENSION [None]
  - HYPERSENSITIVITY [None]
